FAERS Safety Report 20170795 (Version 1)
Quarter: 2021Q4

REPORT INFORMATION
  Report Type: Spontaneous
  Country: US (occurrence: None)
  Receive Date: 20211210
  Receipt Date: 20211210
  Transmission Date: 20220303
  Serious: Yes (Hospitalization)
  Sender: FDA-Public Use
  Company Number: None

PATIENT
  Age: 76 Year
  Sex: Male

DRUGS (1)
  1. APIXABAN [Suspect]
     Active Substance: APIXABAN
     Indication: Atrial fibrillation
     Dosage: FREQUENCY : TWICE A DAY;?
     Route: 048
     Dates: end: 20210108

REACTIONS (5)
  - Melaena [None]
  - Haemoglobin decreased [None]
  - Varices oesophageal [None]
  - Gastrointestinal arteriovenous malformation [None]
  - Haemorrhage [None]

NARRATIVE: CASE EVENT DATE: 20210108
